FAERS Safety Report 12807265 (Version 2)
Quarter: 2016Q4

REPORT INFORMATION
  Report Type: Spontaneous
  Country: IL (occurrence: IL)
  Receive Date: 20161004
  Receipt Date: 20161101
  Transmission Date: 20170207
  Serious: Yes (Hospitalization)
  Sender: FDA-Public Use
  Company Number: IL-ASTRAZENECA-2016SF04531

PATIENT
  Age: 29850 Day
  Sex: Female
  Weight: 63.6 kg

DRUGS (13)
  1. OXYCODONE [Concomitant]
     Active Substance: OXYCODONE
     Indication: ABDOMINAL PAIN
     Dosage: 2.5MG UNKNOWN
     Route: 048
     Dates: start: 201607
  2. DIPYRON [Concomitant]
     Indication: ABDOMINAL PAIN
     Dosage: 70 DROPS
     Route: 048
     Dates: start: 201607
  3. TARGIN [Concomitant]
     Active Substance: NALOXONE HYDROCHLORIDE\OXYCODONE HYDROCHLORIDE
     Indication: ABDOMINAL PAIN
     Dosage: 10.0MG UNKNOWN
     Route: 048
     Dates: start: 201607
  4. BISPROLOL [Concomitant]
     Indication: ARRHYTHMIA
     Dosage: 2.5MG UNKNOWN
     Route: 048
     Dates: start: 201603
  5. BACLOFEN. [Concomitant]
     Active Substance: BACLOFEN
     Indication: GASTROOESOPHAGEAL REFLUX DISEASE
     Dosage: 10.0MG UNKNOWN
     Route: 048
     Dates: start: 2014
  6. SIMVASTATIN. [Concomitant]
     Active Substance: SIMVASTATIN
     Indication: CORONARY ARTERY DISEASE
     Dosage: 10.0MG UNKNOWN
     Route: 048
  7. OLAPARIB [Suspect]
     Active Substance: OLAPARIB
     Indication: PANCREATIC CARCINOMA
     Route: 048
     Dates: start: 20160906, end: 20160920
  8. BROTISOLAM [Concomitant]
     Indication: INSOMNIA
     Dosage: 0.25MG UNKNOWN
     Route: 048
     Dates: start: 201606
  9. OLAPARIB [Suspect]
     Active Substance: OLAPARIB
     Indication: PANCREATIC CARCINOMA
     Route: 048
     Dates: start: 20160930
  10. ALLORIL [Concomitant]
     Indication: NEPHRECTOMY
     Dosage: 100.0MG UNKNOWN
     Route: 048
     Dates: start: 1994
  11. NEXIUM [Concomitant]
     Active Substance: ESOMEPRAZOLE MAGNESIUM
     Indication: GASTRITIS
     Dosage: 40.0MG UNKNOWN
     Route: 048
     Dates: start: 201605
  12. MAGNOX [Concomitant]
     Indication: HYPOMAGNESAEMIA
     Route: 048
     Dates: start: 2014
  13. FLECAINIDE [Concomitant]
     Active Substance: FLECAINIDE
     Dosage: 100.0MG UNKNOWN
     Route: 048
     Dates: start: 2016

REACTIONS (1)
  - Dysphagia [Recovering/Resolving]

NARRATIVE: CASE EVENT DATE: 20160922
